FAERS Safety Report 9294623 (Version 2)
Quarter: 2013Q2

REPORT INFORMATION
  Report Type: Spontaneous
  Country: SK (occurrence: SK)
  Receive Date: 20130517
  Receipt Date: 20130517
  Transmission Date: 20140414
  Serious: Yes (Other)
  Sender: FDA-Public Use
  Company Number: SK-009507513-1305SVK000011

PATIENT
  Age: 83 Year
  Sex: Female

DRUGS (1)
  1. TRUSOPT 20 MG/ML EYE DROPS, SOLUTION [Suspect]
     Indication: GLAUCOMA
     Dosage: UNK
     Route: 047
     Dates: start: 20130204, end: 201304

REACTIONS (3)
  - Conjunctivitis allergic [Recovered/Resolved]
  - Eczema [Recovered/Resolved]
  - Eye allergy [Recovered/Resolved]
